FAERS Safety Report 5999932-2 (Version None)
Quarter: 2008Q4

REPORT INFORMATION
  Report Type: 
  Country: None (occurrence: None)
  Receive Date: 20081215
  Receipt Date: 20081208
  Transmission Date: 20090506
  Serious: Yes (Death)
  Sender: FDA-Public Use
  Company Number: PHHY2008JP31211

PATIENT
  Age: 86 Year
  Sex: Female

DRUGS (1)
  1. ICL670A ICL+DISTAB [Suspect]
     Indication: IRON OVERLOAD
     Dosage: UNK
     Route: 048
     Dates: start: 20080701, end: 20081001

REACTIONS (2)
  - HAEMODIALYSIS [None]
  - RENAL FAILURE CHRONIC [None]
